FAERS Safety Report 5467443-9 (Version None)
Quarter: 2007Q3

REPORT INFORMATION
  Report Type: 
  Country: None (occurrence: None)
  Receive Date: 20070925
  Receipt Date: 20070913
  Transmission Date: 20080115
  Serious: Yes (Hospitalization, Disabling)
  Sender: FDA-Public Use
  Company Number: US-SHR-US-2007-009989

PATIENT
  Age: 32 Year
  Sex: Male
  Weight: 73 kg

DRUGS (25)
  1. MAGNEVIST [Suspect]
     Dosage: .1 MMOL/KG
     Route: 042
     Dates: start: 20040115, end: 20040115
  2. MAGNEVIST [Suspect]
     Dosage: .1 MMOL/KG
     Route: 042
     Dates: start: 20040225, end: 20040225
  3. MAGNEVIST [Suspect]
     Dosage: 17 ML, 0.12 MMOL/KG
     Route: 042
     Dates: start: 20040706, end: 20040706
  4. MAGNEVIST [Suspect]
     Dosage: .1 MMOL/KG
     Route: 042
     Dates: start: 20031216, end: 20031216
  5. TRAZODONE HCL [Concomitant]
     Dosage: 50 MG, 1X/DAY
     Route: 048
  6. PAXIL [Concomitant]
     Dosage: 20 MG, 1X/DAY
     Route: 048
  7. NEPHRO-VITE RX [Concomitant]
     Dosage: 1 MG, 1X/DAY
     Route: 048
  8. FOLIC ACID [Concomitant]
     Dosage: 1 MG, 1X/DAY
     Route: 048
  9. PROTONIX [Concomitant]
     Dosage: 40 MG, 1X/DAY
     Route: 048
  10. ZELNORM                                 /USA/ [Concomitant]
     Indication: NAUSEA
     Dosage: 6 MG, 2X/DAY
     Route: 048
  11. SENNA [Concomitant]
     Dosage: 2 TAB(S), 1X/DAY
     Route: 048
  12. BISACODYL [Concomitant]
     Dosage: 2 TAB(S), 1X/DAY
     Route: 048
  13. DARBEPOETIN ALFA [Concomitant]
     Dosage: 40 A?G, 1X/WEEK
     Route: 058
  14. OXYCONTIN [Concomitant]
     Dosage: 20 MG, 2X/DAY
     Route: 048
  15. NEURONTIN [Concomitant]
     Dosage: 300 MG, 1X/DAY
     Route: 048
  16. PHOSLO [Concomitant]
     Dosage: 1334 MG, 3X/DAY
     Route: 048
  17. COLACE [Concomitant]
     Dosage: 100 MG, 3X/DAY
     Route: 048
  18. CITRUCEL [Concomitant]
     Dosage: 2 TAB(S), 2X/DAY
     Route: 048
  19. CLARITIN [Concomitant]
     Dosage: 10 MG, 1X/DAY
     Route: 048
  20. COUMADIN [Concomitant]
     Indication: DEEP VEIN THROMBOSIS
     Dosage: 6 MG, 1X/DAY
     Route: 048
  21. BACTROBAN [Concomitant]
     Dosage: UNK, 1X/DAY
     Route: 061
  22. DILAUDID [Concomitant]
     Indication: BREAKTHROUGH PAIN
     Dosage: 2 -4 MG Q 3 HRS
     Route: 048
  23. DULCOLAX [Concomitant]
     Dosage: 10 MG, AS REQ'D
     Route: 048
  24. FERRLECIT                               /USA/ [Concomitant]
     Route: 042
  25. ANZEMET [Concomitant]

REACTIONS (5)
  - DYSKINESIA [None]
  - DYSPHAGIA [None]
  - NEPHROGENIC SYSTEMIC FIBROSIS [None]
  - SPEECH DISORDER [None]
  - TONGUE DISORDER [None]
